FAERS Safety Report 4889242-9 (Version None)
Quarter: 2006Q1

REPORT INFORMATION
  Report Type: 
  Country: None (occurrence: None)
  Receive Date: 20060120
  Receipt Date: 20060120
  Transmission Date: 20060701
  Serious: Yes (Hospitalization)
  Sender: FDA-Public Use
  Company Number: None

PATIENT
  Age: 63 Year
  Sex: Male

DRUGS (2)
  1. DECADRON [Suspect]
     Indication: HEADACHE
     Dosage: 4 MG   BID   PO
     Route: 048
  2. DECADRON [Suspect]
     Indication: METASTASES TO CENTRAL NERVOUS SYSTEM
     Dosage: 4 MG   BID   PO
     Route: 048

REACTIONS (1)
  - HYPERGLYCAEMIA [None]
